FAERS Safety Report 25186669 (Version 2)
Quarter: 2025Q2

REPORT INFORMATION
  Report Type: Spontaneous
  Country: US (occurrence: US)
  Receive Date: 20250411
  Receipt Date: 20250505
  Transmission Date: 20250717
  Serious: Yes (Other)
  Sender: MERCK SHARP & DOHME LLC
  Company Number: US-009507513-2256420

PATIENT
  Age: 79 Year
  Sex: Female
  Weight: 81.193 kg

DRUGS (4)
  1. KEYTRUDA [Suspect]
     Active Substance: PEMBROLIZUMAB
     Indication: Microsatellite instability cancer
     Dosage: 200 MG, Q3W
     Route: 042
     Dates: start: 20240613, end: 20250213
  2. XANAX [Concomitant]
     Active Substance: ALPRAZOLAM
     Route: 048
     Dates: start: 20240523
  3. ZOFRAN-ODT [Concomitant]
     Route: 048
     Dates: start: 20240506
  4. ATIVAN [Concomitant]
     Active Substance: LORAZEPAM
     Indication: Anxiety
     Dosage: 0.5 MG, EVERY 8 H
     Route: 048
     Dates: start: 20240412

REACTIONS (5)
  - Chills [Recovered/Resolved]
  - Cough [Recovered/Resolved]
  - Immune-mediated dermatitis [Recovered/Resolved]
  - Arthralgia [Unknown]
  - Rash [Unknown]

NARRATIVE: CASE EVENT DATE: 20240613
